FAERS Safety Report 20483142 (Version 2)
Quarter: 2022Q1

REPORT INFORMATION
  Report Type: Spontaneous
  Country: US (occurrence: US)
  Receive Date: 20220217
  Receipt Date: 20220223
  Transmission Date: 20220424
  Serious: Yes (Other)
  Sender: FDA-Public Use
  Company Number: US-AUROBINDO-AUR-APL-2022-004517

PATIENT
  Age: 70 Year
  Sex: Female

DRUGS (3)
  1. CARBOPLATIN [Suspect]
     Active Substance: CARBOPLATIN
     Indication: Metastatic neoplasm
     Dosage: UNK
     Route: 065
  2. MITOMYCIN [Suspect]
     Active Substance: MITOMYCIN
     Indication: Metastatic neoplasm
     Dosage: UNK
     Route: 065
  3. FILGRASTIM [Concomitant]
     Active Substance: FILGRASTIM
     Indication: Neutrophil count
     Dosage: UNK, ONCE A DAY
     Route: 065

REACTIONS (1)
  - Encephalopathy [Recovered/Resolved]
